FAERS Safety Report 6054389-0 (Version None)
Quarter: 2009Q1

REPORT INFORMATION
  Report Type: 
  Country: None (occurrence: None)
  Receive Date: 20090127
  Receipt Date: 20090115
  Transmission Date: 20090719
  Serious: Yes (Death, Hospitalization)
  Sender: FDA-Public Use
  Company Number: FR-B.I. PHARMACEUTICALS,INC./RIDGEFIELD-2009-FF-00019FF

PATIENT
  Sex: Male

DRUGS (8)
  1. JOSIR [Suspect]
     Dosage: .4MG
     Route: 048
     Dates: end: 20080821
  2. COZAAR [Concomitant]
     Route: 048
     Dates: end: 20080821
  3. FLUDEX [Concomitant]
     Route: 048
     Dates: end: 20080821
  4. ZOCOR [Concomitant]
     Dosage: 20MG
     Route: 048
     Dates: end: 20080821
  5. NOVOPULMON [Concomitant]
  6. DIMETANE [Concomitant]
  7. DAKTARIN 2% [Concomitant]
  8. ANTARENE [Concomitant]
     Route: 048

REACTIONS (1)
  - PULMONARY FIBROSIS [None]
